FAERS Safety Report 7955260-7 (Version None)
Quarter: 2011Q4

REPORT INFORMATION
  Report Type: 
  Country: None (occurrence: None)
  Receive Date: 20111202
  Receipt Date: 20111130
  Transmission Date: 20120403
  Serious: Yes (Death, Disabling)
  Sender: FDA-Public Use
  Company Number: NG-ABBOTT-11P-121-0862181-01

PATIENT

DRUGS (7)
  1. FLUCONAZOLE [Concomitant]
     Indication: ANTIFUNGAL PROPHYLAXIS
     Dates: start: 20110823
  2. AUGMENTIN [Concomitant]
     Indication: ANTIBIOTIC PROPHYLAXIS
     Dates: start: 20110915
  3. SULFA/TMX [Concomitant]
     Indication: ANTIBIOTIC PROPHYLAXIS
     Dates: start: 20110823
  4. MULTIVITE [Concomitant]
     Indication: VITAMIN SUPPLEMENTATION
     Dosage: FIXED DOSE
     Dates: start: 20110809, end: 20111129
  5. LOPINAVIR/RITONAVIR [Suspect]
     Indication: HIV INFECTION
     Dosage: 200 / 50 MG
     Route: 048
     Dates: start: 20110531, end: 20111129
  6. COMBIVIR [Concomitant]
     Indication: PRODUCT USED FOR UNKNOWN INDICATION
     Dosage: 300 MG/ 150 MG
     Dates: start: 20110531, end: 20111129
  7. IBUPROFEN [Concomitant]
     Indication: ANTIINFLAMMATORY THERAPY
     Dates: start: 20110909, end: 20111129

REACTIONS (2)
  - MENINGITIS CRYPTOCOCCAL [None]
  - DEATH [None]
